FAERS Safety Report 25524126 (Version 1)
Quarter: 2025Q3

REPORT INFORMATION
  Report Type: Spontaneous
  Country: US (occurrence: US)
  Receive Date: 20250707
  Receipt Date: 20250707
  Transmission Date: 20251020
  Serious: Yes (Hospitalization, Other)
  Sender: SKG PHARMA INC
  Company Number: US-SKG-000012

PATIENT
  Age: 32 Year
  Sex: Female

DRUGS (2)
  1. HYDROXYCHLOROQUINE [Concomitant]
     Active Substance: HYDROXYCHLOROQUINE
     Indication: Rheumatoid arthritis
     Route: 065
  2. CABERGOLINE [Suspect]
     Active Substance: CABERGOLINE
     Indication: Hyperprolactinaemia
     Route: 065

REACTIONS (3)
  - Wernicke^s encephalopathy [Recovered/Resolved]
  - Vitamin B1 deficiency [Recovered/Resolved]
  - Decreased appetite [Recovered/Resolved]
